FAERS Safety Report 7943018-4 (Version None)
Quarter: 2011Q4

REPORT INFORMATION
  Report Type: 
  Country: None (occurrence: None)
  Receive Date: 20111128
  Receipt Date: 20111121
  Transmission Date: 20120403
  Serious: Yes (Hospitalization)
  Sender: FDA-Public Use
  Company Number: US-ACTELION-A-US2011-57150

PATIENT

DRUGS (1)
  1. TRACLEER [Suspect]
     Indication: PULMONARY ARTERIAL HYPERTENSION
     Dosage: UNK
     Route: 048
     Dates: start: 20110927

REACTIONS (9)
  - DYSPNOEA [None]
  - CLOSTRIDIAL INFECTION [None]
  - RESPIRATORY TRACT INFECTION [None]
  - VOMITING [None]
  - DIARRHOEA [None]
  - DYSPEPSIA [None]
  - FATIGUE [None]
  - DIZZINESS [None]
  - ARTHRALGIA [None]
